FAERS Safety Report 9188064 (Version 1)
Quarter: 2013Q1

REPORT INFORMATION
  Report Type: Spontaneous
  Country: US (occurrence: US)
  Receive Date: 20130325
  Receipt Date: 20130325
  Transmission Date: 20140127
  Serious: No
  Sender: FDA-Public Use
  Company Number: US-MYLANLABS-2013S1001578

PATIENT
  Age: 62 Year
  Sex: Female
  Weight: 73.48 kg

DRUGS (6)
  1. FENTANYL TRANSDERMAL SYSTEM [Suspect]
     Indication: BACK PAIN
     Dosage: Q3D
     Route: 062
     Dates: start: 201212, end: 201301
  2. MIRAPEX [Concomitant]
     Indication: PARKINSON^S DISEASE
  3. OXYCODONE [Concomitant]
     Indication: PAIN
  4. CYANOCOBALAMIN [Concomitant]
     Route: 058
  5. BLOOD PRESSURE MEDICATION [Concomitant]
     Indication: BLOOD PRESSURE INCREASED
  6. ZOLOFT [Concomitant]
     Indication: DEPRESSION

REACTIONS (5)
  - Drug ineffective [Not Recovered/Not Resolved]
  - Pain [Not Recovered/Not Resolved]
  - Nausea [Recovered/Resolved]
  - Vomiting [Recovered/Resolved]
  - Feeling abnormal [Recovered/Resolved]
